FAERS Safety Report 9297728 (Version 1)
Quarter: 2013Q2

REPORT INFORMATION
  Report Type: Spontaneous
  Country: US (occurrence: US)
  Receive Date: 20130520
  Receipt Date: 20130520
  Transmission Date: 20140414
  Serious: No
  Sender: FDA-Public Use
  Company Number: US-PFIZER INC-2013150972

PATIENT
  Sex: Male

DRUGS (4)
  1. CELEBREX [Suspect]
     Dosage: UNK
  2. NEURONTIN [Suspect]
     Dosage: UNK
  3. LIPITOR [Suspect]
     Dosage: UNK
  4. NORVASC [Suspect]
     Dosage: UNK

REACTIONS (4)
  - Nasopharyngitis [Unknown]
  - Malaise [Unknown]
  - Bronchitis [Unknown]
  - Gastric disorder [Unknown]
